FAERS Safety Report 4770452-6 (Version None)
Quarter: 2005Q3

REPORT INFORMATION
  Report Type: 
  Country: None (occurrence: None)
  Receive Date: 20050914
  Receipt Date: 20050914
  Transmission Date: 20060218
  Serious: Yes (Death, Hospitalization)
  Sender: FDA-Public Use
  Company Number: None

PATIENT
  Age: 64 Year
  Sex: Male
  Weight: 97.5234 kg

DRUGS (1)
  1. IRESSA [Suspect]
     Indication: PANCREATIC CARCINOMA
     Dosage: 1 TABLET DAILY ORAL
     Route: 048
     Dates: start: 20041203, end: 20050506

REACTIONS (3)
  - ABDOMINAL PAIN [None]
  - JAUNDICE [None]
  - NAUSEA [None]
